FAERS Safety Report 21635954 (Version 2)
Quarter: 2023Q1

REPORT INFORMATION
  Report Type: Spontaneous
  Country: US (occurrence: US)
  Receive Date: 20221123
  Receipt Date: 20230321
  Transmission Date: 20230418
  Serious: No
  Sender: FDA-Public Use
  Company Number: US-GLENMARK PHARMACEUTICALS-2022GMK074655

PATIENT

DRUGS (1)
  1. CLOBETASOL PROPIONATE [Suspect]
     Active Substance: CLOBETASOL PROPIONATE
     Indication: Seborrhoeic dermatitis
     Dosage: UNK, PRN
     Route: 061

REACTIONS (8)
  - Application site erythema [Unknown]
  - Poor quality product administered [Unknown]
  - Inappropriate schedule of product administration [Unknown]
  - Product container issue [Unknown]
  - Therapeutic product effect decreased [Unknown]
  - Product contamination [Unknown]
  - Seborrhoeic dermatitis [Unknown]
  - Condition aggravated [Unknown]

NARRATIVE: CASE EVENT DATE: 20220101
